FAERS Safety Report 15057078 (Version 1)
Quarter: 2018Q2

REPORT INFORMATION
  Report Type: Spontaneous
  Country: CA (occurrence: CA)
  Receive Date: 20180624
  Receipt Date: 20180624
  Transmission Date: 20180711
  Serious: Yes (Hospitalization, Other)
  Sender: FDA-Public Use
  Company Number: CA-JUBILANT PHARMA LTD-2018CA000658

PATIENT
  Sex: Female

DRUGS (4)
  1. SODIUM IODIDE I-131. [Suspect]
     Active Substance: SODIUM IODIDE I-131
     Indication: PAPILLARY THYROID CANCER
     Dosage: 100 MCI, SINGLE DOSE
     Dates: end: 20060906
  2. SODIUM IODIDE I-131. [Suspect]
     Active Substance: SODIUM IODIDE I-131
     Indication: METASTASES TO LUNG
     Dosage: 175 MCI, SINGLE DOSE
     Dates: end: 20070724
  3. SODIUM IODIDE I-131. [Suspect]
     Active Substance: SODIUM IODIDE I-131
     Dosage: 150 MCI, SINGLE DOSE
     Dates: end: 20040917
  4. SODIUM IODIDE I-131. [Suspect]
     Active Substance: SODIUM IODIDE I-131
     Dosage: 150 MCI, SINGLE DOSE
     Dates: end: 20000418

REACTIONS (4)
  - Bone marrow failure [Recovered/Resolved]
  - Febrile neutropenia [Recovered/Resolved]
  - Hypotension [Recovered/Resolved]
  - Pancytopenia [Recovered/Resolved]

NARRATIVE: CASE EVENT DATE: 2007
